FAERS Safety Report 6168519-3 (Version None)
Quarter: 2009Q2

REPORT INFORMATION
  Report Type: 
  Country: None (occurrence: None)
  Receive Date: 20090427
  Receipt Date: 20090421
  Transmission Date: 20091009
  Serious: Yes (Other)
  Sender: FDA-Public Use
  Company Number: B0558452A

PATIENT
  Sex: Female

DRUGS (3)
  1. RELENZA [Suspect]
     Indication: INFLUENZA
     Route: 055
     Dates: start: 20090204, end: 20090204
  2. MEDICON [Concomitant]
     Dosage: 90MG PER DAY
     Route: 048
     Dates: start: 20090203, end: 20090205
  3. CALONAL [Concomitant]
     Route: 048
     Dates: start: 20090203, end: 20090206

REACTIONS (6)
  - AMNESIA [None]
  - HEADACHE [None]
  - LOSS OF CONSCIOUSNESS [None]
  - NAUSEA [None]
  - PRESYNCOPE [None]
  - VOMITING [None]
